FAERS Safety Report 11552066 (Version 1)
Quarter: 2015Q3

REPORT INFORMATION
  Report Type: Spontaneous
  Country: US (occurrence: US)
  Receive Date: 20150903
  Receipt Date: 20150903
  Transmission Date: 20151125
  Serious: No
  Sender: FDA-Public Use
  Company Number: US-ELI_LILLY_AND_COMPANY-US201006003436

PATIENT
  Age: 62 Year
  Sex: Male

DRUGS (4)
  1. HUMALOG [Suspect]
     Active Substance: INSULIN LISPRO
     Indication: DIABETES MELLITUS
  2. APIDRA [Concomitant]
     Active Substance: INSULIN GLULISINE
  3. INSULIN [Concomitant]
     Active Substance: INSULIN NOS
  4. HUMALOG MIX75/25 [Suspect]
     Active Substance: INSULIN LISPRO
     Indication: DIABETES MELLITUS

REACTIONS (3)
  - Headache [Unknown]
  - Drug dispensing error [Unknown]
  - Wrong drug administered [Unknown]
